FAERS Safety Report 8976710 (Version 1)
Quarter: 2012Q4

REPORT INFORMATION
  Report Type: 
  Country: US (occurrence: US)
  Receive Date: 20121220
  Receipt Date: 20121220
  Transmission Date: 20130627
  Serious: Yes (Hospitalization)
  Sender: FDA-Public Use
  Company Number: US-ELI_LILLY_AND_COMPANY-US201212003153

PATIENT
  Age: 77 Year
  Sex: Female

DRUGS (12)
  1. FORTEO [Suspect]
     Indication: BONE DENSITY DECREASED
     Dosage: 20 ug, qd
     Dates: start: 201105
  2. AZULFIDINE [Concomitant]
  3. METOLAZONE [Concomitant]
  4. HYDROXYCHLOROQUINE [Concomitant]
  5. XANAX [Concomitant]
  6. EFFEXOR [Concomitant]
  7. METAXALONE [Concomitant]
  8. CARDIAZEM [Concomitant]
  9. ACTOS [Concomitant]
  10. PROLOPRIM [Concomitant]
  11. DETROL [Concomitant]
  12. OXYBUTIN [Concomitant]

REACTIONS (6)
  - Road traffic accident [Unknown]
  - Excoriation [Unknown]
  - Musculoskeletal pain [Unknown]
  - Face injury [Unknown]
  - Haemorrhage [Unknown]
  - Cystitis [Unknown]
